FAERS Safety Report 9079236 (Version 1)
Quarter: 2013Q1

REPORT INFORMATION
  Report Type: Spontaneous
  Country: DE (occurrence: DE)
  Receive Date: 20130215
  Receipt Date: 20130215
  Transmission Date: 20140127
  Serious: Yes (Death)
  Sender: FDA-Public Use
  Company Number: DE-009507513-1302DEU001924

PATIENT
  Age: 55 Year
  Sex: Female
  Weight: 70 kg

DRUGS (1)
  1. TEMODAL [Suspect]
     Indication: GLIOBLASTOMA
     Dosage: 140 MG MILLIGRAM(S), 1 IN 1 DAY (ALSO REPORTED AS DAILY DOSE 140 MG, 3640 MG)
     Route: 048
     Dates: start: 20120820, end: 20120914

REACTIONS (1)
  - Bone marrow failure [Fatal]
